FAERS Safety Report 9746719 (Version 2)
Quarter: 2013Q4

REPORT INFORMATION
  Report Type: Report from Study
  Country: DE (occurrence: DE)
  Receive Date: 20131211
  Receipt Date: 20131211
  Transmission Date: 20140711
  Serious: Yes (Hospitalization)
  Sender: FDA-Public Use
  Company Number: DE-ABBVIE-13P-062-1174309-00

PATIENT
  Age: 50 Year
  Sex: Female
  Weight: 84 kg

DRUGS (18)
  1. HUMIRA [Suspect]
     Indication: RHEUMATOID ARTHRITIS
     Route: 058
     Dates: start: 20121004, end: 20130607
  2. HUMIRA [Suspect]
     Route: 058
     Dates: start: 20130607, end: 20130710
  3. LEFLUNOMIDE [Concomitant]
     Indication: PRODUCT USED FOR UNKNOWN INDICATION
  4. ENBREL [Concomitant]
     Indication: PRODUCT USED FOR UNKNOWN INDICATION
     Dosage: UNKNOWN
     Dates: start: 20131008
  5. LEVOTHYROXINE [Concomitant]
     Indication: PRODUCT USED FOR UNKNOWN INDICATION
  6. PANTOPRAZOLE [Concomitant]
     Indication: PRODUCT USED FOR UNKNOWN INDICATION
  7. EXFORGE HCT [Concomitant]
     Indication: PRODUCT USED FOR UNKNOWN INDICATION
  8. VENLAFAXINE [Concomitant]
     Indication: PRODUCT USED FOR UNKNOWN INDICATION
  9. CETIRIZINE [Concomitant]
     Indication: PRODUCT USED FOR UNKNOWN INDICATION
  10. SIOFOR [Concomitant]
     Indication: PRODUCT USED FOR UNKNOWN INDICATION
  11. AMARYL [Concomitant]
     Indication: PRODUCT USED FOR UNKNOWN INDICATION
  12. XELEVIA [Concomitant]
     Indication: PRODUCT USED FOR UNKNOWN INDICATION
  13. TARGIN [Concomitant]
     Indication: PRODUCT USED FOR UNKNOWN INDICATION
  14. FLUTIFORM [Concomitant]
     Indication: PRODUCT USED FOR UNKNOWN INDICATION
     Dosage: 125/5UG
  15. SULTANOL [Concomitant]
     Indication: PRODUCT USED FOR UNKNOWN INDICATION
  16. UREA [Concomitant]
     Indication: PRODUCT USED FOR UNKNOWN INDICATION
  17. FUCICORT [Concomitant]
     Indication: PRODUCT USED FOR UNKNOWN INDICATION
  18. POLIDOCANOL [Concomitant]
     Indication: PRODUCT USED FOR UNKNOWN INDICATION

REACTIONS (17)
  - Hepatomegaly [Not Recovered/Not Resolved]
  - Hepatic steatosis [Not Recovered/Not Resolved]
  - White blood cell count increased [Recovered/Resolved]
  - Liver function test abnormal [Recovered/Resolved]
  - Drug ineffective [Unknown]
  - Infection [Unknown]
  - Hypochromic anaemia [Not Recovered/Not Resolved]
  - Gastritis [Recovered/Resolved]
  - Hyperglycaemia [Recovered/Resolved]
  - Unevaluable event [Not Recovered/Not Resolved]
  - Herpes simplex [Recovered/Resolved with Sequelae]
  - Abdominal pain upper [Recovered/Resolved]
  - Nausea [Recovered/Resolved]
  - Vomiting [Recovered/Resolved]
  - Malaise [Recovered/Resolved]
  - Abdominal distension [Recovered/Resolved]
  - Diabetic neuropathy [Not Recovered/Not Resolved]
